FAERS Safety Report 22593725 (Version 1)
Quarter: 2023Q2

REPORT INFORMATION
  Report Type: Spontaneous
  Country: JP (occurrence: JP)
  Receive Date: 20230613
  Receipt Date: 20230613
  Transmission Date: 20230722
  Serious: Yes (Hospitalization, Other)
  Sender: FDA-Public Use
  Company Number: JP-GLAXOSMITHKLINE-JP2023JPN081138

PATIENT

DRUGS (1)
  1. DAPRODUSTAT [Suspect]
     Active Substance: DAPRODUSTAT
     Dosage: UNK
     Route: 048
     Dates: start: 202303

REACTIONS (2)
  - Peritoneal dialysis [Unknown]
  - End stage renal disease [Unknown]

NARRATIVE: CASE EVENT DATE: 20230601
